FAERS Safety Report 5368279-X (Version None)
Quarter: 2007Q2

REPORT INFORMATION
  Report Type: 
  Country: None (occurrence: None)
  Receive Date: 20070619
  Receipt Date: 20070606
  Transmission Date: 20071010
  Serious: Yes (Other)
  Sender: FDA-Public Use
  Company Number: GB-1163177

PATIENT
  Age: 80 Year
  Sex: Male

DRUGS (11)
  1. MAXITROL [Suspect]
     Dosage: OPHTALMIC, EYE DROPS SUSPENSION
     Route: 047
     Dates: start: 20070418, end: 20070514
  2. OTHER EMOLLIENTS AND PROTECTIVE (OTHER EMOLLIENTES AND PROTECTIVES) [Concomitant]
  3. ASPIRIN [Concomitant]
  4. ATORVASTATIN CALCIUM [Concomitant]
  5. CALCICHEW D3 (LEKOVIT CA) [Concomitant]
  6. CANDESARTAN CILEXETIL (CANDESARTAN CILEXETIL) [Concomitant]
  7. DIPYRIDAMOLE [Concomitant]
  8. FLUTICASONE PROPIONATE [Concomitant]
  9. IBUPROFEN [Concomitant]
  10. LATANOPROST (LATONOPROST) [Concomitant]
  11. OILATUM (OILATUM) [Concomitant]

REACTIONS (1)
  - MUSCLE HAEMORRHAGE [None]
